FAERS Safety Report 17663006 (Version 2)
Quarter: 2020Q2

REPORT INFORMATION
  Report Type: Report from Study
  Country: US (occurrence: US)
  Receive Date: 20200413
  Receipt Date: 20200630
  Transmission Date: 20200713
  Serious: Yes (Hospitalization)
  Sender: FDA-Public Use
  Company Number: US-ACTELION-A-NJ2019-195590

PATIENT
  Sex: Male
  Weight: 149.66 kg

DRUGS (9)
  1. OXYGEN. [Concomitant]
     Active Substance: OXYGEN
     Dosage: 4 LITER
  2. TADALAFIL. [Concomitant]
     Active Substance: TADALAFIL
  3. UPTRAVI [Suspect]
     Active Substance: SELEXIPAG
     Dosage: 800 MCG, BID
     Route: 048
  4. OXYGEN. [Concomitant]
     Active Substance: OXYGEN
     Dosage: UNK, PRN
  5. UPTRAVI [Suspect]
     Active Substance: SELEXIPAG
     Dosage: 1000 MCG, BID
     Route: 048
  6. OXYGEN. [Concomitant]
     Active Substance: OXYGEN
     Dosage: 3 1/2 LITER
  7. UPTRAVI [Suspect]
     Active Substance: SELEXIPAG
     Dosage: 200 MCG, BID
     Route: 048
  8. UPTRAVI [Suspect]
     Active Substance: SELEXIPAG
     Indication: PULMONARY HYPERTENSION
     Dosage: 600 MCG, BID
     Route: 048
  9. OPSUMIT [Suspect]
     Active Substance: MACITENTAN
     Indication: PULMONARY HYPERTENSION
     Dosage: 10 MG, QD
     Route: 048

REACTIONS (33)
  - Viral infection [Unknown]
  - Dizziness postural [Recovering/Resolving]
  - Rhinorrhoea [Unknown]
  - Flushing [Unknown]
  - Asthma [Unknown]
  - Pain [Unknown]
  - Muscle spasms [Unknown]
  - Asthenia [Unknown]
  - Anaemia [Unknown]
  - Blood iron decreased [Unknown]
  - Lacrimation increased [Unknown]
  - Multiple allergies [Unknown]
  - Dyspnoea [Not Recovered/Not Resolved]
  - Dyspepsia [Unknown]
  - Cough [Unknown]
  - Pain in extremity [Unknown]
  - Eye pruritus [Unknown]
  - Dysphonia [Unknown]
  - Discomfort [Unknown]
  - Migraine [Unknown]
  - Nasopharyngitis [Unknown]
  - Myalgia [Unknown]
  - Arthralgia [Unknown]
  - Dizziness [Unknown]
  - Headache [Unknown]
  - Nasal congestion [Unknown]
  - Urticaria [Unknown]
  - Abdominal discomfort [Unknown]
  - Chest pain [Unknown]
  - Oxygen saturation decreased [Unknown]
  - Nausea [Recovering/Resolving]
  - Chills [Unknown]
  - Somnolence [Recovering/Resolving]
